FAERS Safety Report 5676330-2 (Version None)
Quarter: 2008Q1

REPORT INFORMATION
  Report Type: 
  Country: None (occurrence: None)
  Receive Date: 20080321
  Receipt Date: 20080312
  Transmission Date: 20080703
  Serious: Yes (Other)
  Sender: FDA-Public Use
  Company Number: JP-PFIZER INC-2008018332

PATIENT
  Sex: Female

DRUGS (5)
  1. ZYVOX [Suspect]
     Indication: STAPHYLOCOCCAL INFECTION
     Dosage: DAILY DOSE:600MG
     Route: 042
  2. ZYVOX [Suspect]
     Indication: NECROTISING FASCIITIS
     Dosage: DAILY DOSE:1200MG
     Route: 042
  3. ZYVOX [Suspect]
     Indication: SHOCK
  4. MEROPEN [Concomitant]
     Route: 042
     Dates: start: 20080215, end: 20080220
  5. DALACIN-S [Concomitant]
     Route: 042
     Dates: start: 20080215, end: 20080225

REACTIONS (1)
  - VENTRICULAR EXTRASYSTOLES [None]
